FAERS Safety Report 16826444 (Version 1)
Quarter: 2019Q3

REPORT INFORMATION
  Report Type: Spontaneous
  Country: FR (occurrence: FR)
  Receive Date: 20190919
  Receipt Date: 20190919
  Transmission Date: 20191005
  Serious: Yes (Hospitalization)
  Sender: FDA-Public Use
  Company Number: FR-PFIZER INC-2019397048

PATIENT
  Age: 70 Year
  Sex: Male
  Weight: 69 kg

DRUGS (7)
  1. XYLOCAIN [LIDOCAINE HYDROCHLORIDE] [Suspect]
     Active Substance: LIDOCAINE HYDROCHLORIDE
     Indication: GENERAL ANAESTHESIA
     Dosage: 50 MG, SINGLE
     Route: 042
     Dates: start: 20181014
  2. SUFENTANIL [Suspect]
     Active Substance: SUFENTANIL
     Indication: GENERAL ANAESTHESIA
     Dosage: 154 UG, SINGLE
     Route: 042
     Dates: start: 20181014
  3. CEFAZOLINE [CEFAZOLIN] [Suspect]
     Active Substance: CEFAZOLIN
     Indication: OPPORTUNISTIC INFECTION PROPHYLAXIS
     Dosage: 2 G, SINGLE
     Route: 042
     Dates: start: 20181014
  4. KETAMINE [Suspect]
     Active Substance: KETAMINE
     Indication: GENERAL ANAESTHESIA
     Dosage: 20 MG, SINGLE
     Route: 042
     Dates: start: 20181014
  5. BETAMETHASONE. [Suspect]
     Active Substance: BETAMETHASONE
     Indication: GENERAL ANAESTHESIA
     Dosage: 8 MG, SINGLE
     Route: 042
     Dates: start: 20181014
  6. PROPOFOL. [Suspect]
     Active Substance: PROPOFOL
     Indication: GENERAL ANAESTHESIA
     Dosage: 160 MG, SINGLE
     Route: 042
     Dates: start: 20181014
  7. ROCURONIUM BROMIDE. [Suspect]
     Active Substance: ROCURONIUM BROMIDE
     Indication: GENERAL ANAESTHESIA
     Dosage: 35 MG, SINGLE
     Route: 042
     Dates: start: 20181014

REACTIONS (4)
  - Erythema [Recovered/Resolved]
  - Anaphylactic shock [Recovered/Resolved]
  - Bronchospasm [Recovered/Resolved]
  - Hypotension [Recovered/Resolved]

NARRATIVE: CASE EVENT DATE: 20181014
